FAERS Safety Report 8906227 (Version 2)
Quarter: 2013Q1

REPORT INFORMATION
  Report Type: Spontaneous
  Country: US (occurrence: None)
  Receive Date: 20121108
  Receipt Date: 20130110
  Transmission Date: 20140127
  Serious: Yes (Death)
  Sender: FDA-Public Use
  Company Number: ACO_32729_2012

PATIENT
  Age: 50 Year
  Sex: Female

DRUGS (8)
  1. AMPYRA (DALFAMPRIDINE) TABLET, 10MG [Suspect]
     Indication: PRODUCT USED FOR UNKNOWN INDICATION
     Dates: start: 20111025
  2. MELOXICAM (MELOXICAM) [Concomitant]
  3. AMBIEN (ZOLPIDEM TARTRATE) [Concomitant]
  4. CLONAZEPAM (CLONAZEPAM) (CLONAZEPAM) [Concomitant]
  5. VALPROIC ACID (VALPROIC ACID) [Concomitant]
  6. COPAXONE (GLATIRAMER ACETATE) [Concomitant]
  7. GABAPENTIN (GABAPENTIN) [Concomitant]
  8. TRAMADOL (TRAMADOL HHYDROCHLORIDE) [Concomitant]

REACTIONS (1)
  - Death [None]
